FAERS Safety Report 5362056-1 (Version None)
Quarter: 2007Q2

REPORT INFORMATION
  Report Type: 
  Country: None (occurrence: None)
  Receive Date: 20070615
  Receipt Date: 20070615
  Transmission Date: 20071010
  Serious: Yes (Other)
  Sender: FDA-Public Use
  Company Number: None

PATIENT
  Sex: Female

DRUGS (8)
  1. REVLIMID [Suspect]
     Indication: MYELODYSPLASTIC SYNDROME
     Dosage: 10MG DAILY 21D/28D PO
     Route: 048
  2. LOMOTIL [Concomitant]
  3. EVISTA [Concomitant]
  4. EXJADE [Concomitant]
  5. PROZAC [Concomitant]
  6. ATENOLOL [Concomitant]
  7. OMEPRAZOLE [Concomitant]
  8. VIDAZA [Concomitant]

REACTIONS (1)
  - NEUTROPENIA [None]
